FAERS Safety Report 14422420 (Version 1)
Quarter: 2018Q1

REPORT INFORMATION
  Report Type: Spontaneous
  Country: US (occurrence: US)
  Receive Date: 20180123
  Receipt Date: 20180123
  Transmission Date: 20180509
  Serious: Yes (Death, Hospitalization)
  Sender: FDA-Public Use
  Company Number: US-INGENUS PHARMACEUTICALS NJ, LLC-ING201801-000060

PATIENT
  Age: 16 Year
  Sex: Male

DRUGS (1)
  1. CARISOPRODOL AND ASPIRIN [Suspect]
     Active Substance: ASPIRIN\CARISOPRODOL
     Indication: SUICIDE ATTEMPT
     Dosage: 400 TABLETS OF 325 MG

REACTIONS (10)
  - Tinnitus [Not Recovered/Not Resolved]
  - Completed suicide [Fatal]
  - Death [Fatal]
  - Abdominal pain [Not Recovered/Not Resolved]
  - Metabolic acidosis [Not Recovered/Not Resolved]
  - Cardiac arrest [Fatal]
  - Respiratory failure [Fatal]
  - Respiratory acidosis [Not Recovered/Not Resolved]
  - Intentional overdose [Fatal]
  - Respiratory distress [Not Recovered/Not Resolved]
